FAERS Safety Report 13952181 (Version 3)
Quarter: 2018Q1

REPORT INFORMATION
  Report Type: Report from Study
  Country: US (occurrence: US)
  Receive Date: 20170911
  Receipt Date: 20180118
  Transmission Date: 20180508
  Serious: Yes (Hospitalization, Other)
  Sender: FDA-Public Use
  Company Number: US-BRISTOL-MYERS SQUIBB COMPANY-BMS-2017-079673

PATIENT
  Age: 54 Year
  Sex: Male
  Weight: 52.6 kg

DRUGS (3)
  1. CABOZANTINIB [Suspect]
     Active Substance: CABOZANTINIB
     Indication: TRANSITIONAL CELL CARCINOMA METASTATIC
     Dosage: 40 MG, QD
     Route: 048
     Dates: start: 20170614
  2. IPILIMUMAB [Suspect]
     Active Substance: IPILIMUMAB
     Indication: TRANSITIONAL CELL CARCINOMA METASTATIC
     Dosage: 1 MG/KG, UNK
     Route: 042
     Dates: start: 20170614
  3. NIVOLUMAB [Suspect]
     Active Substance: NIVOLUMAB
     Indication: TRANSITIONAL CELL CARCINOMA METASTATIC
     Dosage: 3 MG/KG, UNK
     Route: 042
     Dates: start: 20170614

REACTIONS (2)
  - Skin infection [Recovered/Resolved with Sequelae]
  - Staphylococcal bacteraemia [Recovered/Resolved with Sequelae]

NARRATIVE: CASE EVENT DATE: 20170819
